FAERS Safety Report 6474045-4 (Version None)
Quarter: 2009Q4

REPORT INFORMATION
  Report Type: 
  Country: None (occurrence: None)
  Receive Date: 20091204
  Receipt Date: 20091124
  Transmission Date: 20100525
  Serious: Yes (Other)
  Sender: FDA-Public Use
  Company Number: JP-ABBOTT-09P-087-0608034-00

PATIENT
  Age: 14 Month
  Sex: Female
  Weight: 6.9 kg

DRUGS (6)
  1. SEVOFLURANE [Suspect]
     Indication: GENERAL ANAESTHESIA
     Dosage: 2%
     Route: 055
     Dates: start: 20090528, end: 20090528
  2. THIAMYLAL SODIUM [Concomitant]
     Indication: INDUCTION OF ANAESTHESIA
     Dosage: UNKNOWN
     Route: 042
     Dates: start: 20090528, end: 20090528
  3. PROPOFOL [Concomitant]
     Indication: DRUG USE FOR UNKNOWN INDICATION
  4. ROCURONIUM BROMIDE [Concomitant]
     Indication: HYPOTONIA
     Dates: start: 20090528, end: 20090528
  5. MIDAZOLAM HCL [Concomitant]
     Indication: MAINTENANCE OF ANAESTHESIA
     Dates: start: 20090528, end: 20090528
  6. ATROPINE SULFATE [Concomitant]
     Indication: MAINTENANCE OF ANAESTHESIA
     Dates: start: 20090528, end: 20090528

REACTIONS (1)
  - INTRACRANIAL PRESSURE INCREASED [None]
